FAERS Safety Report 9187969 (Version 1)
Quarter: 2013Q1

REPORT INFORMATION
  Report Type: Spontaneous
  Country: CN (occurrence: CN)
  Receive Date: 20130325
  Receipt Date: 20130325
  Transmission Date: 20140127
  Serious: Yes (Death, Hospitalization)
  Sender: FDA-Public Use
  Company Number: CN-MYLANLABS-2013S1005828

PATIENT
  Age: 34 Year
  Sex: Male

DRUGS (9)
  1. PREDNISOLONE [Suspect]
     Indication: NEPHROTIC SYNDROME
     Dosage: 60MG DAILY
     Route: 065
  2. TRIAMCINOLONE [Suspect]
     Indication: NEPHROTIC SYNDROME
     Dosage: 48MG DAILY
     Route: 065
  3. FLUCONAZOLE [Suspect]
     Indication: CRYPTOCOCCOSIS
     Dosage: 400MG DAILY
     Route: 042
  4. FUROSEMIDE [Concomitant]
     Indication: NEPHROTIC SYNDROME
     Dosage: 20MG DAILY DAILY
     Route: 065
  5. GAMMAGLOBULIN [Concomitant]
     Indication: IMMUNE ENHANCEMENT THERAPY
     Route: 065
  6. MOXIFLOXACIN [Concomitant]
     Indication: EVIDENCE BASED TREATMENT
     Route: 042
  7. CEFMENOXIME [Concomitant]
     Indication: EVIDENCE BASED TREATMENT
     Route: 042
  8. CASPOFUNGIN [Concomitant]
     Route: 065
  9. LINEZOLID [Concomitant]
     Route: 065

REACTIONS (4)
  - Disseminated cryptococcosis [Fatal]
  - Immune reconstitution inflammatory syndrome [Fatal]
  - Acute respiratory failure [Unknown]
  - Cardiac failure acute [Unknown]
